FAERS Safety Report 16523740 (Version 1)
Quarter: 2019Q3

REPORT INFORMATION
  Report Type: Report from Study
  Country: DE (occurrence: DE)
  Receive Date: 20190702
  Receipt Date: 20190702
  Transmission Date: 20191004
  Serious: Yes (Death, Life-Threatening, Hospitalization)
  Sender: FDA-Public Use
  Company Number: DE-MYLANLABS-2019M1061046

PATIENT
  Age: 86 Year
  Sex: Female

DRUGS (3)
  1. LORZAAR [Concomitant]
     Active Substance: LOSARTAN
     Indication: HYPERTENSION
     Dosage: 50 MILLIGRAM, QD
     Route: 048
     Dates: start: 20030630, end: 20030909
  2. UNAT COR [Concomitant]
     Indication: CARDIAC FAILURE
     Dosage: 1 DOSAGE FORM, QD
     Route: 048
     Dates: start: 20030630, end: 20030909
  3. CARVEDILOL. [Suspect]
     Active Substance: CARVEDILOL
     Indication: CARDIAC FAILURE
     Dosage: 3 DOSAGE FORM, QD
     Route: 048
     Dates: start: 20030711, end: 20030909

REACTIONS (1)
  - Right ventricular failure [Fatal]

NARRATIVE: CASE EVENT DATE: 20030909
